FAERS Safety Report 4355315-2 (Version None)
Quarter: 2004Q2

REPORT INFORMATION
  Report Type: 
  Country: None (occurrence: None)
  Receive Date: 20040505
  Receipt Date: 20040419
  Transmission Date: 20050107
  Serious: Yes (Hospitalization)
  Sender: FDA-Public Use
  Company Number: 2004AP01746

PATIENT
  Age: 62 Year
  Sex: Female
  Weight: 75 kg

DRUGS (5)
  1. IRESSA [Suspect]
     Indication: COLORECTAL CANCER
     Dosage: 250 MG DAILY; PO
     Route: 048
     Dates: start: 20040209, end: 20040313
  2. FLUOROURACIL [Suspect]
     Indication: COLORECTAL CANCER
     Dosage: 600 MG/M2; IV
     Route: 042
     Dates: start: 20040209, end: 20040229
  3. FLUOROURACIL [Concomitant]
     Indication: COLORECTAL CANCER
     Dosage: 600 MG/M2; IV
     Route: 042
     Dates: start: 20040209, end: 20040229
  4. OXALIPLATIN [Suspect]
     Indication: COLORECTAL CANCER
     Dosage: 85 MG/M2; IV
     Route: 042
     Dates: start: 20040209, end: 20040227
  5. LEUCOVORIN CALCIUM [Suspect]
     Indication: COLORECTAL CANCER
     Dosage: 100 MG/M2; IV
     Route: 042
     Dates: start: 20040209, end: 20040228

REACTIONS (13)
  - ATELECTASIS [None]
  - BLOOD CREATININE INCREASED [None]
  - BLOOD FIBRINOGEN INCREASED [None]
  - BLOOD SODIUM DECREASED [None]
  - CHEST X-RAY ABNORMAL [None]
  - DIARRHOEA [None]
  - DYSPHAGIA [None]
  - GINGIVAL BLEEDING [None]
  - MOUTH HAEMORRHAGE [None]
  - ORAL MUCOSAL PETECHIAE [None]
  - PROTHROMBIN TIME PROLONGED [None]
  - PYREXIA [None]
  - VOMITING [None]
